FAERS Safety Report 17563928 (Version 22)
Quarter: 2022Q4

REPORT INFORMATION
  Report Type: Report from Study
  Country: US (occurrence: US)
  Receive Date: 20200320
  Receipt Date: 20221021
  Transmission Date: 20230113
  Serious: Yes (Hospitalization, Other)
  Sender: FDA-Public Use
  Company Number: US-SHIRE-US202010587

PATIENT
  Age: 56 Year
  Sex: Female
  Weight: 157 kg

DRUGS (63)
  1. HUMAN IMMUNOGLOBULIN G [Suspect]
     Active Substance: HUMAN IMMUNOGLOBULIN G
     Indication: Immunodeficiency common variable
     Dosage: 28 GRAM, 1/WEEK
     Route: 058
     Dates: start: 20180305
  2. HUMAN IMMUNOGLOBULIN G [Suspect]
     Active Substance: HUMAN IMMUNOGLOBULIN G
     Dosage: 28 GRAM, 1/WEEK
     Route: 058
     Dates: start: 20180306
  3. HUMAN IMMUNOGLOBULIN G [Suspect]
     Active Substance: HUMAN IMMUNOGLOBULIN G
     Dosage: 28 GRAM, 1/WEEK
     Route: 058
     Dates: start: 20180306
  4. HUMAN IMMUNOGLOBULIN G [Suspect]
     Active Substance: HUMAN IMMUNOGLOBULIN G
     Dosage: 28 GRAM, 1/WEEK
     Route: 058
     Dates: start: 20180306
  5. HUMAN IMMUNOGLOBULIN G [Suspect]
     Active Substance: HUMAN IMMUNOGLOBULIN G
     Dosage: UNK UNK, 1/WEEK
     Route: 058
     Dates: start: 20180306
  6. HUMAN IMMUNOGLOBULIN G [Suspect]
     Active Substance: HUMAN IMMUNOGLOBULIN G
     Dosage: 14 GRAM, 1/WEEK
     Route: 058
     Dates: start: 20180306
  7. HUMAN IMMUNOGLOBULIN G [Suspect]
     Active Substance: HUMAN IMMUNOGLOBULIN G
     Dosage: 28 GRAM, 1/WEEK
     Route: 058
     Dates: start: 20180603
  8. HUMAN IMMUNOGLOBULIN G [Suspect]
     Active Substance: HUMAN IMMUNOGLOBULIN G
     Dosage: 28 GRAM, 1/WEEK
     Route: 058
     Dates: start: 20180625
  9. HUMAN IMMUNOGLOBULIN G [Suspect]
     Active Substance: HUMAN IMMUNOGLOBULIN G
     Dosage: 28 GRAM, 1/WEEK
     Route: 058
     Dates: start: 20180626
  10. ACETAMINOPHEN [Concomitant]
     Active Substance: ACETAMINOPHEN
     Indication: Product used for unknown indication
     Route: 065
  11. DIPHENHYDRAMINE [Concomitant]
     Active Substance: DIPHENHYDRAMINE
     Indication: Product used for unknown indication
     Route: 065
  12. LIDOCAINE [Concomitant]
     Active Substance: LIDOCAINE
     Indication: Product used for unknown indication
     Route: 065
  13. EPINEPHRINE [Concomitant]
     Active Substance: EPINEPHRINE
     Indication: Product used for unknown indication
     Route: 065
  14. CLINDAMYCIN [Concomitant]
     Active Substance: CLINDAMYCIN
     Indication: Product used for unknown indication
     Route: 065
  15. NUCYNTA [Concomitant]
     Active Substance: TAPENTADOL HYDROCHLORIDE
     Indication: Product used for unknown indication
     Route: 065
  16. CYMBALTA [Concomitant]
     Active Substance: DULOXETINE HYDROCHLORIDE
     Indication: Product used for unknown indication
     Route: 065
  17. NASONEX [Concomitant]
     Active Substance: MOMETASONE FUROATE
     Indication: Product used for unknown indication
     Route: 065
  18. NEXIUM I.V. [Concomitant]
     Active Substance: ESOMEPRAZOLE SODIUM
     Indication: Product used for unknown indication
     Route: 065
  19. MAXZIDE [Concomitant]
     Active Substance: HYDROCHLOROTHIAZIDE\TRIAMTERENE
     Indication: Product used for unknown indication
     Route: 065
  20. ATORVASTATIN CALCIUM [Concomitant]
     Active Substance: ATORVASTATIN CALCIUM
     Indication: Product used for unknown indication
     Route: 065
  21. GABAPENTIN [Concomitant]
     Active Substance: GABAPENTIN
     Indication: Product used for unknown indication
     Route: 065
  22. ZYRTEC-D [Concomitant]
     Active Substance: CETIRIZINE HYDROCHLORIDE\PSEUDOEPHEDRINE HYDROCHLORIDE
     Indication: Product used for unknown indication
     Route: 065
  23. VITAMIN E [Concomitant]
     Active Substance: .ALPHA.-TOCOPHEROL
     Indication: Product used for unknown indication
     Route: 065
  24. VITAMIN C [Concomitant]
     Active Substance: ASCORBIC ACID
     Indication: Product used for unknown indication
     Route: 065
  25. COENZYME Q10 [Concomitant]
     Active Substance: DIETARY SUPPLEMENT\UBIDECARENONE
     Indication: Product used for unknown indication
     Route: 065
  26. POTASSIUM [Concomitant]
     Active Substance: POTASSIUM
     Indication: Product used for unknown indication
     Route: 065
  27. FISH OIL [Concomitant]
     Active Substance: FISH OIL
     Indication: Product used for unknown indication
     Route: 065
  28. TRAZODONE [Concomitant]
     Active Substance: TRAZODONE HYDROCHLORIDE
     Indication: Product used for unknown indication
     Route: 065
  29. MECLIZINE [Concomitant]
     Active Substance: MECLIZINE HYDROCHLORIDE
     Indication: Product used for unknown indication
     Route: 065
  30. CYANOCOBALAMIN [Concomitant]
     Active Substance: CYANOCOBALAMIN
     Indication: Product used for unknown indication
     Route: 065
  31. VITAMINS [Concomitant]
     Active Substance: VITAMINS
     Indication: Product used for unknown indication
     Route: 065
  32. MAGNESIUM [Concomitant]
     Active Substance: MAGNESIUM
     Indication: Product used for unknown indication
     Route: 065
  33. VITAMIN D3 [Concomitant]
     Active Substance: CHOLECALCIFEROL
     Indication: Product used for unknown indication
     Route: 065
  34. CHOLESTYRAMINE [Concomitant]
     Active Substance: CHOLESTYRAMINE
     Indication: Product used for unknown indication
     Route: 065
  35. HYDROCHLOROTHIAZIDE\TRIAMTERENE [Concomitant]
     Active Substance: HYDROCHLOROTHIAZIDE\TRIAMTERENE
     Indication: Product used for unknown indication
     Route: 065
  36. KLOR-CON [Concomitant]
     Active Substance: POTASSIUM CHLORIDE
     Indication: Product used for unknown indication
     Route: 065
  37. EVENING PRIMROSE OIL [OENOTHERA BIENNIS OIL] [Concomitant]
     Indication: Product used for unknown indication
     Route: 065
  38. CALCIUM [Concomitant]
     Active Substance: CALCIUM
     Indication: Product used for unknown indication
     Route: 065
  39. BIOTIN [Concomitant]
     Active Substance: BIOTIN
     Indication: Product used for unknown indication
     Route: 065
  40. ACETAMINOPHEN\HYDROCODONE [Concomitant]
     Active Substance: ACETAMINOPHEN\HYDROCODONE
     Indication: Product used for unknown indication
     Route: 065
  41. TIZANIDINE [Concomitant]
     Active Substance: TIZANIDINE
     Indication: Product used for unknown indication
     Route: 065
  42. TYLENOL WITH CODEINE [Concomitant]
     Active Substance: ACETAMINOPHEN\CODEINE PHOSPHATE
     Indication: Product used for unknown indication
     Route: 065
  43. SOOLANTRA [Concomitant]
     Active Substance: IVERMECTIN
     Route: 065
  44. DEXILANT [Concomitant]
     Active Substance: DEXLANSOPRAZOLE
     Route: 065
  45. MEDERMA [Concomitant]
     Active Substance: AVOBENZONE\OCTOCRYLENE\OXYBENZONE
     Route: 065
  46. AMZEEQ [Concomitant]
     Active Substance: MINOCYCLINE HYDROCHLORIDE
     Route: 065
  47. CHOLESTYRAMINE [Concomitant]
     Active Substance: CHOLESTYRAMINE
     Route: 065
  48. VITAMIN B [Concomitant]
     Active Substance: VITAMIN B
     Route: 065
  49. URSODIOL [Concomitant]
     Active Substance: URSODIOL
  50. VITAMINS [Concomitant]
     Active Substance: VITAMINS
  51. IRON [Concomitant]
     Active Substance: IRON
  52. SYSTANE ULTRA [Concomitant]
     Active Substance: POLYETHYLENE GLYCOL 400\PROPYLENE GLYCOL
  53. AZELASTINE HYDROCHLORIDE [Concomitant]
     Active Substance: AZELASTINE HYDROCHLORIDE
     Dosage: UNK
     Route: 065
  54. UPNEEQ [Concomitant]
     Active Substance: OXYMETAZOLINE HYDROCHLORIDE
     Dosage: UNK
     Route: 065
  55. FEXOFENADINE HCL [Concomitant]
     Active Substance: FEXOFENADINE HYDROCHLORIDE
     Dosage: UNK
     Route: 065
  56. ACETAMINOPHEN AND CODEINE [Concomitant]
     Active Substance: ACETAMINOPHEN\CODEINE PHOSPHATE
  57. CLINDAMYCIN PHOSPHATE [Concomitant]
     Active Substance: CLINDAMYCIN PHOSPHATE
  58. TRAZODONE HCL [Concomitant]
     Active Substance: TRAZODONE HYDROCHLORIDE
     Dosage: UNK
     Route: 065
  59. TIZANIDINE HYDROCHLORIDE [Concomitant]
     Active Substance: TIZANIDINE HYDROCHLORIDE
     Dosage: UNK
     Route: 065
  60. MECLIZINE HYDROCHLORIDE [Concomitant]
     Active Substance: MECLIZINE HYDROCHLORIDE
     Dosage: UNK
     Route: 065
  61. IPRATROPIUM BROMIDE [Concomitant]
     Active Substance: IPRATROPIUM BROMIDE
     Dosage: UNK
     Route: 065
  62. RESTASIS [Concomitant]
     Active Substance: CYCLOSPORINE
  63. CLONIDINE [Concomitant]
     Active Substance: CLONIDINE

REACTIONS (34)
  - Intervertebral disc operation [Unknown]
  - Squamous cell carcinoma [Unknown]
  - Bacterial infection [Unknown]
  - Cyst [Unknown]
  - Joint swelling [Unknown]
  - Bacterial vaginosis [Unknown]
  - Urinary tract infection [Unknown]
  - Perioral dermatitis [Unknown]
  - Malaise [Unknown]
  - Back pain [Not Recovered/Not Resolved]
  - Headache [Unknown]
  - Fatigue [Unknown]
  - Peripheral venous disease [Unknown]
  - Oedema peripheral [Unknown]
  - Herpes virus infection [Unknown]
  - Illness [Unknown]
  - Dizziness [Not Recovered/Not Resolved]
  - Nausea [Unknown]
  - Dyspepsia [Unknown]
  - Neck pain [Not Recovered/Not Resolved]
  - Palpitations [Not Recovered/Not Resolved]
  - Insomnia [Not Recovered/Not Resolved]
  - Stress [Not Recovered/Not Resolved]
  - Condition aggravated [Not Recovered/Not Resolved]
  - Vertigo [Unknown]
  - Product dose omission in error [Unknown]
  - Incorrect drug administration rate [Unknown]
  - Vomiting [Unknown]
  - Gastric bypass [Unknown]
  - Rash pruritic [Unknown]
  - Hot flush [Unknown]
  - Chills [Unknown]
  - Salivary gland mass [Unknown]
  - Thyroid mass [Unknown]

NARRATIVE: CASE EVENT DATE: 20200101
